FAERS Safety Report 15966177 (Version 1)
Quarter: 2019Q1

REPORT INFORMATION
  Report Type: Report from Study
  Country: BR (occurrence: BR)
  Receive Date: 20190215
  Receipt Date: 20190215
  Transmission Date: 20190418
  Serious: Yes (Death)
  Sender: FDA-Public Use
  Company Number: BR-PFIZER INC-2019068746

PATIENT

DRUGS (3)
  1. IFOSFAMIDE. [Suspect]
     Active Substance: IFOSFAMIDE
     Indication: BURKITT^S LYMPHOMA RECURRENT
     Dosage: UNK (SALVAGE TREATMENT WITH THE ICE REGIMEN)
  2. CARBOPLATIN. [Suspect]
     Active Substance: CARBOPLATIN
     Indication: BURKITT^S LYMPHOMA RECURRENT
     Dosage: UNK (SALVAGE TREATMENT WITH THE ICE REGIMEN)
  3. ETOPOSIDE. [Suspect]
     Active Substance: ETOPOSIDE
     Indication: BURKITT^S LYMPHOMA RECURRENT
     Dosage: UNK (SALVAGE TREATMENT WITH THE ICE REGIMEN)

REACTIONS (1)
  - Febrile neutropenia [Fatal]
